FAERS Safety Report 4681386-X (Version None)
Quarter: 2005Q2

REPORT INFORMATION
  Report Type: 
  Country: None (occurrence: None)
  Receive Date: 20050603
  Receipt Date: 20050302
  Transmission Date: 20051028
  Serious: No
  Sender: FDA-Public Use
  Company Number: 2005PK00407

PATIENT
  Age: 778 Month
  Sex: Female
  Weight: 58 kg

DRUGS (1)
  1. ARIMIDEX [Suspect]
     Indication: BREAST CANCER
     Route: 048
     Dates: start: 20030301, end: 20050201

REACTIONS (1)
  - MUSCULOSKELETAL PAIN [None]
